FAERS Safety Report 6272376-4 (Version None)
Quarter: 2009Q3

REPORT INFORMATION
  Report Type: 
  Country: None (occurrence: None)
  Receive Date: 20090717
  Receipt Date: 20090708
  Transmission Date: 20100115
  Serious: Yes (Disabling)
  Sender: FDA-Public Use
  Company Number: FR-ASTRAZENECA-2009SE04352

PATIENT
  Age: 71 Year
  Sex: Female

DRUGS (3)
  1. MEPIVACAINE HCL [Suspect]
     Indication: LOCAL ANAESTHESIA
     Dosage: 14 ML OF 20 MG/ML
     Route: 053
  2. MIANSERINE [Concomitant]
     Indication: DEPRESSION
  3. ALPRAZOLAM [Concomitant]
     Indication: DEPRESSION

REACTIONS (1)
  - RETINAL ARTERY OCCLUSION [None]
